FAERS Safety Report 5815286-6 (Version None)
Quarter: 2008Q3

REPORT INFORMATION
  Report Type: 
  Country: None (occurrence: None)
  Receive Date: 20080718
  Receipt Date: 20080707
  Transmission Date: 20090109
  Serious: Yes (Other)
  Sender: FDA-Public Use
  Company Number: SE-PFIZER INC-2008056415

PATIENT
  Sex: Female

DRUGS (1)
  1. LYRICA [Suspect]
     Indication: GENERALISED ANXIETY DISORDER

REACTIONS (9)
  - DIZZINESS [None]
  - EPILEPSY [None]
  - FACIAL PAIN [None]
  - HYPOAESTHESIA [None]
  - LOSS OF CONSCIOUSNESS [None]
  - ORAL PAIN [None]
  - OROPHARYNGEAL SPASM [None]
  - TOOTH DISORDER [None]
  - WITHDRAWAL SYNDROME [None]
